FAERS Safety Report 6442605-2 (Version None)
Quarter: 2009Q4

REPORT INFORMATION
  Report Type: 
  Country: None (occurrence: None)
  Receive Date: 20091117
  Receipt Date: 20091109
  Transmission Date: 20100525
  Serious: Yes (Hospitalization)
  Sender: FDA-Public Use
  Company Number: DE-JNJFOC-20091007497

PATIENT
  Age: 70 Year
  Sex: Male

DRUGS (6)
  1. FENTANYL-100 [Suspect]
     Indication: BACK PAIN
     Route: 062
     Dates: start: 20080920
  2. PANTOZOL [Suspect]
     Indication: REFLUX OESOPHAGITIS
     Route: 048
     Dates: start: 20080601
  3. NOVAMINSULFON [Concomitant]
     Indication: BACK PAIN
     Route: 048
     Dates: start: 20080601
  4. BERLTHYROX [Concomitant]
     Indication: THYROID CANCER
     Route: 048
     Dates: start: 20070201
  5. DIPIPERON [Concomitant]
     Indication: SLEEP DISORDER
     Route: 048
     Dates: start: 20080601
  6. RESTEX [Concomitant]
     Indication: RESTLESS LEGS SYNDROME
     Route: 048
     Dates: start: 20070201

REACTIONS (1)
  - FAECALOMA [None]
